FAERS Safety Report 6665557-9 (Version None)
Quarter: 2010Q2

REPORT INFORMATION
  Report Type: 
  Country: None (occurrence: None)
  Receive Date: 20100402
  Receipt Date: 20100401
  Transmission Date: 20101027
  Serious: Yes (Death)
  Sender: FDA-Public Use
  Company Number: PHHO2010RU04674

PATIENT
  Sex: Male
  Weight: 112 kg

DRUGS (3)
  1. ALISKIREN ALI+TAB+CF [Suspect]
     Indication: CARDIAC FAILURE
     Dosage: UNK
     Route: 048
     Dates: start: 20091217
  2. ALISKIREN [Suspect]
     Indication: CARDIAC FAILURE
     Dosage: UNK
     Route: 048
     Dates: start: 20091203, end: 20091216
  3. COMPARATOR ENALAPRIL [Suspect]
     Indication: CARDIAC FAILURE
     Dosage: UNK
     Dates: start: 20091111, end: 20091216

REACTIONS (2)
  - ABDOMINAL PAIN [None]
  - ACUTE ABDOMEN [None]
